FAERS Safety Report 8498346-3 (Version None)
Quarter: 2012Q3

REPORT INFORMATION
  Report Type: 
  Country: None (occurrence: None)
  Receive Date: 20120709
  Receipt Date: 20120703
  Transmission Date: 20120928
  Serious: Yes (Death)
  Sender: FDA-Public Use
  Company Number: US-ROCHE-791678

PATIENT
  Sex: Female
  Weight: 56.25 kg

DRUGS (26)
  1. CITALOPRAM HYDROBROMIDE [Concomitant]
     Route: 048
  2. EPHEDRINE [Concomitant]
  3. DEXAMETHASONE [Concomitant]
  4. CEFAZOLIN [Concomitant]
  5. PREDNISONE [Concomitant]
     Route: 048
  6. SENNA-MINT WAF [Concomitant]
     Dosage: 1-2 TABS ONCE A DAY AT BED TIME
     Route: 048
  7. RITUXIMAB [Suspect]
     Indication: NON-HODGKIN'S LYMPHOMA
     Dosage: UNK
     Route: 065
     Dates: start: 20041113, end: 20100204
  8. ACETAMINOPHEN W/ CODEINE [Concomitant]
     Route: 048
  9. LIDODERM [Concomitant]
     Route: 061
  10. ACETAMINOPHEN [Concomitant]
  11. PROPOFOL [Concomitant]
  12. ONDANSETRON [Concomitant]
  13. ZANTAC [Concomitant]
  14. GLYCOPYRROLATE [Concomitant]
  15. PHENYLEPHRINE HCL [Concomitant]
  16. COLACE [Concomitant]
     Route: 048
  17. VECURONIUM BROMIDE [Concomitant]
  18. NICARDIPINE HCL [Concomitant]
  19. INSULIN ASPART [Concomitant]
     Dosage: 6 UNITS  3 TIMES A DAY
     Route: 058
  20. MIDODRINE HYDROCHLORIDE [Concomitant]
     Route: 048
  21. PREVACID [Concomitant]
     Route: 048
  22. TEMAZEPAM [Concomitant]
  23. MANNITOL [Concomitant]
  24. NEOSTIGMINE BROMIDE [Concomitant]
  25. FENTANYL [Concomitant]
  26. ESMOLOL HCL [Concomitant]

REACTIONS (1)
  - PROGRESSIVE MULTIFOCAL LEUKOENCEPHALOPATHY [None]
